FAERS Safety Report 6504601-6 (Version None)
Quarter: 2009Q4

REPORT INFORMATION
  Report Type: 
  Country: None (occurrence: None)
  Receive Date: 20091215
  Receipt Date: 20091204
  Transmission Date: 20100525
  Serious: Yes (Death, Hospitalization)
  Sender: FDA-Public Use
  Company Number: 2009AC000305

PATIENT
  Age: 79 Year
  Sex: Male

DRUGS (14)
  1. DIGOXIN [Suspect]
     Dosage: 125 MCG; QD; PO
     Route: 048
  2. AMIODARONE [Concomitant]
  3. ASPIRIN [Concomitant]
  4. COUMADIN [Concomitant]
  5. CRESTOR [Concomitant]
  6. FLOMAX [Concomitant]
  7. GLYBURIDE [Concomitant]
  8. K-DUR [Concomitant]
  9. LASIX [Concomitant]
  10. LOPRESSOR [Concomitant]
  11. MULTI-VITAMIN [Concomitant]
  12. NEXIUM [Concomitant]
  13. NITROGLYCERIN [Concomitant]
  14. NYSTATIN [Concomitant]

REACTIONS (13)
  - ANOXIC ENCEPHALOPATHY [None]
  - AORTIC STENOSIS [None]
  - AORTIC VALVE DISEASE [None]
  - ARRHYTHMIA [None]
  - ATRIAL FIBRILLATION [None]
  - BRADYCARDIA [None]
  - CARDIAC ARREST [None]
  - CORONARY ARTERY DISEASE [None]
  - ECONOMIC PROBLEM [None]
  - HAEMATURIA [None]
  - INFECTED SEBACEOUS CYST [None]
  - MULTIPLE INJURIES [None]
  - SURGERY [None]
